FAERS Safety Report 9660523 (Version 1)
Quarter: 2013Q4

REPORT INFORMATION
  Report Type: Spontaneous
  Country: BE (occurrence: BE)
  Receive Date: 20131031
  Receipt Date: 20131031
  Transmission Date: 20140711
  Serious: Yes (Other)
  Sender: FDA-Public Use
  Company Number: BE-GALDERMA-BE13003356

PATIENT
  Sex: Male

DRUGS (2)
  1. EPIDUO [Suspect]
     Dosage: 0.1%-2.5%
     Route: 061
     Dates: start: 201309
  2. TETRALYSAL [Suspect]
     Route: 048
     Dates: start: 201309

REACTIONS (4)
  - White blood cell count decreased [Unknown]
  - White blood cell count increased [Unknown]
  - Platelet count decreased [Unknown]
  - Pyrexia [Unknown]
